FAERS Safety Report 6930264-1 (Version None)
Quarter: 2010Q3

REPORT INFORMATION
  Report Type: 
  Country: None (occurrence: None)
  Receive Date: 20100818
  Receipt Date: 20100809
  Transmission Date: 20110219
  Serious: Yes (Death, Hospitalization)
  Sender: FDA-Public Use
  Company Number: BE-ELI_LILLY_AND_COMPANY-BE201008002125

PATIENT
  Sex: Male
  Weight: 55.9 kg

DRUGS (12)
  1. PEMETREXED [Suspect]
     Indication: HEAD AND NECK CANCER
     Dosage: 500 MG/M2, OTHER (ON DAY ONE EVERY 21 DAYS)
     Route: 042
     Dates: start: 20100506
  2. CETUXIMAB [Suspect]
     Indication: HEAD AND NECK CANCER
     Dosage: 400 MG/M2, LOADING DOSE
     Route: 042
     Dates: start: 20100506, end: 20100506
  3. CETUXIMAB [Suspect]
     Dosage: 250 MG/M2, WEEKLY (1/W)
     Route: 042
  4. CISPLATIN [Suspect]
     Indication: HEAD AND NECK CANCER
     Dosage: 75 MG/M2, OTHER (ON DAY ONE EVERY 21 DAYS)
     Route: 042
     Dates: start: 20100506
  5. FOLIC ACID [Concomitant]
     Indication: PROPHYLAXIS
     Dosage: UNK, UNK
     Dates: start: 20100426, end: 20100803
  6. VITAMIN B-12 [Concomitant]
     Indication: PROPHYLAXIS
     Dosage: UNK, UNK
     Dates: start: 20100427, end: 20100803
  7. DEXAMETHASONE [Concomitant]
     Indication: PROPHYLAXIS
     Dates: start: 20100728, end: 20100731
  8. ZANTAC [Concomitant]
     Indication: PROPHYLAXIS
     Dosage: 300 MG, UNK
     Dates: start: 20100419
  9. EMCONCOR [Concomitant]
     Indication: HYPERTENSION
     Dosage: 300 MG, UNK
     Dates: start: 20100424, end: 20100701
  10. LEXOTAN [Concomitant]
     Indication: PROPHYLAXIS
     Dosage: 6 MG, UNK
     Dates: start: 20100321
  11. ACETAMINOPHEN [Concomitant]
     Indication: PROPHYLAXIS
     Dosage: UNK, UNK
     Dates: start: 20100414
  12. PRIMPERAN TAB [Concomitant]
     Indication: NAUSEA
     Dosage: 10 MG, UNKNOWN
     Dates: start: 20100527

REACTIONS (2)
  - PNEUMONIA ASPIRATION [None]
  - POST PROCEDURAL COMPLICATION [None]
